FAERS Safety Report 7803296-9 (Version None)
Quarter: 2011Q4

REPORT INFORMATION
  Report Type: 
  Country: None (occurrence: None)
  Receive Date: 20111007
  Receipt Date: 20110928
  Transmission Date: 20120403
  Serious: Yes (Life-Threatening, Other)
  Sender: FDA-Public Use
  Company Number: JP-PFIZER INC-2011236620

PATIENT
  Age: 70 Year
  Sex: Male

DRUGS (15)
  1. VANCOMYCIN HYDROCHLORIDE [Concomitant]
     Indication: FEBRILE NEUTROPENIA
     Dosage: UNK
  2. RAMOSETRON HYDROCHLORIDE [Concomitant]
     Dosage: 0.1 MG, 1X/DAY
     Route: 048
  3. CYTARABINE [Concomitant]
     Indication: ACUTE MYELOID LEUKAEMIA
     Dosage: 10 MG/M2, 1 IN 12 HR
     Route: 058
  4. MAGNESIUM OXIDE [Concomitant]
     Dosage: 500 MG, 3X/DAY
     Route: 048
  5. PARACETAMOL [Concomitant]
     Dosage: 400 MG, 1X/DAY
     Route: 048
  6. VORICONAZOLE [Interacting]
     Dosage: 200 MG, 2X/DAY
     Route: 048
  7. ACLARUBICIN HYDROCHLORIDE [Concomitant]
     Indication: ACUTE MYELOID LEUKAEMIA
     Dosage: 14 MG/M2, 1X/DAY
     Route: 042
  8. ACLARUBICIN HYDROCHLORIDE [Concomitant]
     Dosage: 14 MG/M2, 1 IN 12 HR
     Route: 042
  9. MEROPENEM TRIHYDRATE [Concomitant]
     Indication: FEBRILE NEUTROPENIA
     Dosage: UNK, INJECTION
  10. CEFEPIME HYDROCHLORIDE [Concomitant]
     Dosage: 2 G, 1 IN 12 HR
     Route: 042
  11. SODIUM ALGINATE [Concomitant]
     Dosage: 1 G, 3X/DAY
     Route: 048
  12. VORICONAZOLE [Interacting]
     Indication: BRONCHOPULMONARY ASPERGILLOSIS
     Dosage: 200 MG, 2X/DAY
     Route: 048
  13. CYTARABINE [Concomitant]
     Dosage: 10 MG/M2, 1 IN 12 HR
     Route: 058
  14. LANSOPRAZOLE [Suspect]
     Dosage: 30 MG, 1X/DAY
     Route: 048
  15. SUCRALFATE [Concomitant]
     Dosage: 900 MG, 3X/DAY
     Route: 048

REACTIONS (7)
  - TORSADE DE POINTES [None]
  - VENTRICULAR TACHYCARDIA [None]
  - ELECTROCARDIOGRAM QT PROLONGED [None]
  - HYPOMAGNESAEMIA [None]
  - DRUG INTERACTION [None]
  - VENTRICULAR EXTRASYSTOLES [None]
  - EXTRASYSTOLES [None]
